FAERS Safety Report 9896064 (Version 1)
Quarter: 2014Q1

REPORT INFORMATION
  Report Type: Spontaneous
  Country: US (occurrence: US)
  Receive Date: 20140213
  Receipt Date: 20140213
  Transmission Date: 20141002
  Serious: No
  Sender: FDA-Public Use
  Company Number: US-BRISTOL-MYERS SQUIBB COMPANY-19032861

PATIENT
  Age: 39 Year
  Sex: Female
  Weight: 61.22 kg

DRUGS (7)
  1. ABATACEPT SUBQ INJECTION 125MG/ML [Suspect]
     Indication: RHEUMATOID ARTHRITIS
     Route: 058
     Dates: start: 20130603
  2. LEUCOVORIN [Concomitant]
  3. LEXAPRO [Concomitant]
  4. MELOXICAM [Concomitant]
  5. METHOTREXATE [Concomitant]
  6. ORENCIA [Concomitant]
  7. VICODIN [Concomitant]

REACTIONS (1)
  - Headache [Unknown]
